FAERS Safety Report 8942905 (Version 1)
Quarter: 2012Q4

REPORT INFORMATION
  Report Type: Spontaneous
  Country: GB (occurrence: None)
  Receive Date: 20121123
  Receipt Date: 20121123
  Transmission Date: 20130627
  Serious: Yes (Hospitalization)
  Sender: FDA-Public Use
  Company Number: DKLU1086506

PATIENT
  Age: 24 Year
  Sex: Male

DRUGS (3)
  1. ONFI [Suspect]
  2. LAMOTRIGINE (LAMOTRIGINE) [Suspect]
     Dosage: AM
  3. LAMOTRIGINE (LAMOTRIGINE) [Suspect]
     Dosage: PM

REACTIONS (2)
  - Suicide attempt [None]
  - Overdose [None]
